FAERS Safety Report 14304276 (Version 1)
Quarter: 2017Q4

REPORT INFORMATION
  Report Type: Spontaneous
  Country: US (occurrence: US)
  Receive Date: 20171219
  Receipt Date: 20171219
  Transmission Date: 20180321
  Serious: Yes (Other)
  Sender: FDA-Public Use
  Company Number: US-OTSUKA-DJ20094455

PATIENT
  Age: 44 Year
  Sex: Female
  Weight: 113.38 kg

DRUGS (3)
  1. LEXAPRO [Suspect]
     Active Substance: ESCITALOPRAM OXALATE
     Indication: PRODUCT USED FOR UNKNOWN INDICATION
     Dosage: 20 MG, UNK
     Route: 065
  2. ABILIFY [Suspect]
     Active Substance: ARIPIPRAZOLE
     Indication: MOOD SWINGS
     Dosage: 5 MG, UNK
     Route: 048
     Dates: start: 20090804, end: 200908
  3. ABILIFY [Suspect]
     Active Substance: ARIPIPRAZOLE
     Indication: MAJOR DEPRESSION
     Dosage: 2 MG, UNK
     Route: 048
     Dates: start: 20090727, end: 20090803

REACTIONS (7)
  - Mood swings [Recovered/Resolved]
  - Restlessness [Recovered/Resolved]
  - Hepatomegaly [Recovered/Resolved]
  - Fatigue [Recovered/Resolved]
  - Gait disturbance [Recovered/Resolved]
  - Muscle atrophy [Recovered/Resolved]
  - Hepatic pain [Recovered/Resolved]

NARRATIVE: CASE EVENT DATE: 200908
